FAERS Safety Report 7989926 (Version 2)
Quarter: 2012Q4

REPORT INFORMATION
  Report Type: 
  Country: CA (occurrence: CA)
  Receive Date: 20110614
  Receipt Date: 20121113
  Transmission Date: 20130627
  Serious: Yes (Death)
  Sender: FDA-Public Use
  Company Number: PHBS2001CA04258

PATIENT
  Age: 85 Year
  Sex: Female

DRUGS (4)
  1. EXELON [Suspect]
     Indication: DEMENTIA ALZHEIMER^S TYPE
     Route: 048
     Dates: start: 20001012, end: 20001105
  2. EXELON [Suspect]
     Dosage: 3 mg, BID
     Route: 048
     Dates: start: 20001106
  3. EXELON [Suspect]
     Dosage: 6 mg, BID
  4. EXELON [Suspect]
     Dosage: 4.5 mg, BID

REACTIONS (8)
  - Death [Fatal]
  - Nervousness [Recovered/Resolved]
  - Aggression [Recovered/Resolved]
  - Rash [Recovered/Resolved]
  - Hyperhidrosis [Recovered/Resolved]
  - Agitation [Recovered/Resolved]
  - Restlessness [Recovered/Resolved]
  - Insomnia [Not Recovered/Not Resolved]
